FAERS Safety Report 5999703-7 (Version None)
Quarter: 2008Q4

REPORT INFORMATION
  Report Type: 
  Country: None (occurrence: None)
  Receive Date: 20081215
  Receipt Date: 20081204
  Transmission Date: 20090506
  Serious: Yes (Life-Threatening, Other)
  Sender: FDA-Public Use
  Company Number: GB-ASTRAZENECA-2005GB01963

PATIENT
  Age: 14 Year
  Sex: Female
  Weight: 40 kg

DRUGS (3)
  1. ATENOLOL [Suspect]
     Dosage: MAXIMAL POSSIBLE INGESTED DOSE OF 28 TABLETS X 50 MG
     Route: 048
  2. METFORMIN HCL [Suspect]
     Dosage: MAXIMAL POSSIBLE INGESTED DOSE OF 126 TABLETS X 500MG
     Route: 048
  3. DICLOFENAC [Suspect]
     Dosage: MAXIMAL POSSIBLE INGESTED DOSE OF 14 TABLETS X 75MG
     Route: 048

REACTIONS (7)
  - COMA [None]
  - CONVULSION [None]
  - HYPOGLYCAEMIA [None]
  - HYPOTENSION [None]
  - INTENTIONAL OVERDOSE [None]
  - LACTIC ACIDOSIS [None]
  - METABOLIC ACIDOSIS [None]
